FAERS Safety Report 15101708 (Version 1)
Quarter: 2018Q3

REPORT INFORMATION
  Report Type: Spontaneous
  Country: US (occurrence: US)
  Receive Date: 20180703
  Receipt Date: 20180703
  Transmission Date: 20181010
  Serious: No
  Sender: FDA-Public Use
  Company Number: US-AVEDRO-AVE-2018-0073-AE

PATIENT

DRUGS (3)
  1. PHOTREXA [Suspect]
     Active Substance: RIBOFLAVIN 5^-PHOSPHATE SODIUM
     Indication: PRODUCT USED FOR UNKNOWN INDICATION
     Route: 047
  2. KXL SYSTEM [Suspect]
     Active Substance: DEVICE
     Indication: PRODUCT USED FOR UNKNOWN INDICATION
     Route: 047
  3. PHOTREXA VISCOUS [Suspect]
     Active Substance: RIBOFLAVIN 5^-PHOSPHATE SODIUM
     Indication: PRODUCT USED FOR UNKNOWN INDICATION
     Route: 047

REACTIONS (3)
  - Corneal striae [Unknown]
  - Corneal thinning [Unknown]
  - Instillation site dryness [Unknown]
